FAERS Safety Report 4993681-5 (Version None)
Quarter: 2006Q2

REPORT INFORMATION
  Report Type: 
  Country: None (occurrence: None)
  Receive Date: 20060505
  Receipt Date: 20060426
  Transmission Date: 20061013
  Serious: Yes (Hospitalization)
  Sender: FDA-Public Use
  Company Number: GB-BRISTOL-MYERS SQUIBB COMPANY-13358189

PATIENT

DRUGS (1)
  1. FUNGIZONE [Suspect]

REACTIONS (6)
  - ARRHYTHMIA [None]
  - CHEST PAIN [None]
  - CHILLS [None]
  - HYPOTENSION [None]
  - MALAISE [None]
  - PYREXIA [None]
